FAERS Safety Report 20741892 (Version 5)
Quarter: 2022Q2

REPORT INFORMATION
  Report Type: Spontaneous
  Country: US (occurrence: US)
  Receive Date: 20220423
  Receipt Date: 20220610
  Transmission Date: 20220721
  Serious: No
  Sender: FDA-Public Use
  Company Number: US-UNITED THERAPEUTICS-UNT-2022-007815

PATIENT
  Age: 37 Year
  Sex: Female
  Weight: 97.959 kg

DRUGS (7)
  1. REMODULIN [Suspect]
     Active Substance: TREPROSTINIL
     Indication: Pulmonary arterial hypertension
     Dosage: UNK, CONTINUING
     Route: 058
     Dates: start: 20210810
  2. REMODULIN [Suspect]
     Active Substance: TREPROSTINIL
     Dosage: 0.087 ?G/KG, CONTINUING
     Route: 058
  3. REMODULIN [Suspect]
     Active Substance: TREPROSTINIL
     Dosage: UNK, CONTINUING
     Route: 058
  4. REMODULIN [Suspect]
     Active Substance: TREPROSTINIL
     Dosage: UNK, CONTINUING (AT RATE OF 0.05 ML/HR)
     Route: 058
  5. REMODULIN [Suspect]
     Active Substance: TREPROSTINIL
     Dosage: UNK, CONTINUING
     Route: 058
  6. OPSUMIT [Concomitant]
     Active Substance: MACITENTAN
     Indication: Pulmonary arterial hypertension
     Dosage: 10 MG, QD
     Route: 048
  7. TADALAFIL [Concomitant]
     Active Substance: TADALAFIL
     Indication: Product used for unknown indication
     Dosage: UNK
     Route: 065

REACTIONS (22)
  - Dyspnoea exertional [Unknown]
  - Accident at home [Unknown]
  - Thermal burn [Unknown]
  - Loss of personal independence in daily activities [Unknown]
  - Infusion site pain [Unknown]
  - Purulent discharge [Unknown]
  - Infusion site discharge [Unknown]
  - Migraine [Unknown]
  - Malaise [Unknown]
  - Infusion site extravasation [Unknown]
  - Rash erythematous [Unknown]
  - Dyspnoea [Unknown]
  - Dizziness [Unknown]
  - Infusion site scab [Unknown]
  - Palpitations [Unknown]
  - Hypotension [Unknown]
  - Oxygen saturation decreased [Unknown]
  - Device maintenance issue [Unknown]
  - Device adhesion issue [Unknown]
  - Product administration interrupted [Unknown]
  - Product contamination [Unknown]
  - Device leakage [Unknown]

NARRATIVE: CASE EVENT DATE: 20220401
